FAERS Safety Report 6017499-X (Version None)
Quarter: 2008Q4

REPORT INFORMATION
  Report Type: 
  Country: None (occurrence: None)
  Receive Date: 20081223
  Receipt Date: 20080411
  Transmission Date: 20090506
  Serious: No
  Sender: FDA-Public Use
  Company Number: US-BRISTOL-MYERS SQUIBB COMPANY-14148076

PATIENT
  Age: 52 Year
  Sex: Female
  Weight: 96 kg

DRUGS (11)
  1. CARDIOLITE [Suspect]
  2. CRESTOR [Concomitant]
  3. AMLODIPINE [Concomitant]
  4. METOPROLOL [Concomitant]
  5. PLAVIX [Concomitant]
  6. SINGULAIR [Concomitant]
  7. DIOVAN [Concomitant]
  8. CITALOPRAM HYDROBROMIDE [Concomitant]
  9. ASPIRIN [Concomitant]
  10. ADVAIR DISKUS 250/50 [Concomitant]
  11. ALBUTEROL [Concomitant]

REACTIONS (1)
  - URTICARIA [None]
